FAERS Safety Report 12621975 (Version 5)
Quarter: 2016Q4

REPORT INFORMATION
  Report Type: Report from Study
  Country: None (occurrence: TR)
  Receive Date: 20160804
  Receipt Date: 20161213
  Transmission Date: 20170207
  Serious: Yes (Death, Hospitalization)
  Sender: FDA-Public Use
  Company Number: TR-ABBVIE-16K-161-1690013-00

PATIENT
  Age: 68 Year
  Sex: Female
  Weight: 60 kg

DRUGS (4)
  1. XANAX [Concomitant]
     Active Substance: ALPRAZOLAM
     Indication: PSYCHOTIC DISORDER
     Route: 048
     Dates: start: 2000, end: 20160731
  2. PK MERZ [Concomitant]
     Active Substance: AMANTADINE SULFATE
     Indication: PARKINSON^S DISEASE
     Route: 048
     Dates: start: 20160730, end: 20160731
  3. DUODOPA [Suspect]
     Active Substance: CARBIDOPA\LEVODOPA
     Indication: PARKINSON^S DISEASE
     Dosage: MORNING DOSE: 6.0 ML; CONTINOUS DOSE: 3.7 ML; EXTRA DOSE: 1.0 ML
     Route: 050
     Dates: start: 20160730, end: 20160731
  4. MOMECON [Concomitant]
     Indication: GRANULOMA ANNULARE
     Route: 061
     Dates: start: 20160730

REACTIONS (3)
  - Pneumonia aspiration [Not Recovered/Not Resolved]
  - Death [Fatal]
  - Respiratory distress [Not Recovered/Not Resolved]

NARRATIVE: CASE EVENT DATE: 20160731
